FAERS Safety Report 7439551-4 (Version None)
Quarter: 2011Q2

REPORT INFORMATION
  Report Type: 
  Country: None (occurrence: None)
  Receive Date: 20110427
  Receipt Date: 20110415
  Transmission Date: 20111010
  Serious: Yes (Hospitalization)
  Sender: FDA-Public Use
  Company Number: NO-SANOFI-AVENTIS-2011SA023039

PATIENT
  Age: 90 Year

DRUGS (2)
  1. WARFARIN [Interacting]
     Indication: PROPHYLAXIS
     Route: 048
     Dates: start: 20060101
  2. MULTAQ [Suspect]
     Route: 048
     Dates: start: 20110121

REACTIONS (3)
  - CEREBRAL HAEMORRHAGE [None]
  - INTERNATIONAL NORMALISED RATIO INCREASED [None]
  - DRUG INTERACTION [None]
